FAERS Safety Report 14620768 (Version 1)
Quarter: 2018Q1

REPORT INFORMATION
  Report Type: Spontaneous
  Country: FR (occurrence: FR)
  Receive Date: 20180309
  Receipt Date: 20180309
  Transmission Date: 20180509
  Serious: Yes (Hospitalization)
  Sender: FDA-Public Use
  Company Number: FR-SA-2018SA053674

PATIENT
  Age: 85 Year
  Sex: Male
  Weight: 77 kg

DRUGS (10)
  1. IOMERON [Concomitant]
     Active Substance: IOMEPROL
     Route: 013
     Dates: start: 20180121, end: 20180121
  2. BISOCE [Concomitant]
     Active Substance: BISOPROLOL
     Route: 048
     Dates: start: 20180121
  3. PANTOPRAZOLE MYLAN [Concomitant]
     Active Substance: PANTOPRAZOLE SODIUM
     Route: 048
     Dates: start: 20180120
  4. PLAVIX [Suspect]
     Active Substance: CLOPIDOGREL BISULFATE
     Indication: ACUTE CORONARY SYNDROME
     Route: 048
     Dates: start: 20180120, end: 20180120
  5. ASPEGIC [Suspect]
     Active Substance: ASPIRIN DL-LYSINE
     Indication: CORONARY ANGIOPLASTY
     Route: 042
     Dates: start: 20180121, end: 20180121
  6. LOVENOX [Suspect]
     Active Substance: ENOXAPARIN SODIUM
     Indication: CORONARY ANGIOPLASTY
     Route: 058
     Dates: start: 20180122, end: 20180126
  7. RISORDAN [Concomitant]
     Active Substance: ISOSORBIDE DINITRATE
     Route: 022
     Dates: start: 20180121, end: 20180121
  8. ASPIRINE PROTECT [Suspect]
     Active Substance: ASPIRIN
     Indication: CORONARY ANGIOPLASTY
     Route: 048
     Dates: start: 20180121
  9. PREVISCAN (FLUINDIONE) [Suspect]
     Active Substance: FLUINDIONE
     Indication: PULMONARY EMBOLISM
     Route: 048
     Dates: start: 2003, end: 20180120
  10. CANDESARTAN CILEXETIL. [Concomitant]
     Active Substance: CANDESARTAN CILEXETIL
     Route: 048
     Dates: start: 2016

REACTIONS (1)
  - Vascular pseudoaneurysm [Recovered/Resolved]

NARRATIVE: CASE EVENT DATE: 20180122
